FAERS Safety Report 7805457-1 (Version None)
Quarter: 2011Q4

REPORT INFORMATION
  Report Type: 
  Country: None (occurrence: None)
  Receive Date: 20111010
  Receipt Date: 20110929
  Transmission Date: 20120403
  Serious: Yes (Other)
  Sender: FDA-Public Use
  Company Number: PHEH2011US05684

PATIENT
  Age: 83 Year

DRUGS (1)
  1. RECLAST [Suspect]
     Indication: OSTEOPOROSIS
     Dosage: UNK
     Route: 042

REACTIONS (4)
  - EYE PAIN [None]
  - BLINDNESS [None]
  - RENAL IMPAIRMENT [None]
  - EYE OEDEMA [None]
